FAERS Safety Report 12768664 (Version 1)
Quarter: 2016Q3

REPORT INFORMATION
  Report Type: Spontaneous
  Country: US (occurrence: US)
  Receive Date: 20160921
  Receipt Date: 20160921
  Transmission Date: 20161109
  Serious: No
  Sender: FDA-Public Use
  Company Number: US-JAZZ-2016-US-010111

PATIENT
  Sex: Male
  Weight: 74.83 kg

DRUGS (19)
  1. ADDERALL [Concomitant]
     Active Substance: AMPHETAMINE ASPARTATE\AMPHETAMINE SULFATE\DEXTROAMPHETAMINE SACCHARATE\DEXTROAMPHETAMINE SULFATE
  2. CLONAZEPAM. [Concomitant]
     Active Substance: CLONAZEPAM
  3. XYREM [Suspect]
     Active Substance: SODIUM OXYBATE
     Dosage: DOSE ADJUSTMENTS
     Route: 048
  4. TAMSULOSIN HCL [Suspect]
     Active Substance: TAMSULOSIN
     Indication: DYSURIA
  5. ASPIRIN. [Concomitant]
     Active Substance: ASPIRIN
  6. XYREM [Suspect]
     Active Substance: SODIUM OXYBATE
     Dosage: 3 G, BID
     Route: 048
     Dates: start: 201601
  7. PROPRANOLOL [Suspect]
     Active Substance: PROPRANOLOL\PROPRANOLOL HYDROCHLORIDE
     Indication: MIGRAINE PROPHYLAXIS
  8. NODOZ [Concomitant]
     Active Substance: CAFFEINE
  9. CENTRUM SILVER [Concomitant]
     Active Substance: MINERALS\VITAMINS
  10. XYREM [Suspect]
     Active Substance: SODIUM OXYBATE
     Indication: NARCOLEPSY
     Dosage: 2.25 G, BID
     Route: 048
     Dates: start: 201410, end: 201411
  11. ATORVASTATIN [Concomitant]
     Active Substance: ATORVASTATIN
     Indication: BLOOD CHOLESTEROL INCREASED
  12. CLARITIN [Concomitant]
     Active Substance: LORATADINE
  13. MELATONIN [Concomitant]
     Active Substance: MELATONIN
  14. UROCIT-K [Concomitant]
     Active Substance: POTASSIUM CITRATE
  15. COENZYME Q10 [Concomitant]
     Active Substance: UBIDECARENONE
  16. FISH OIL [Concomitant]
     Active Substance: FISH OIL
  17. L-CARNITINE [Concomitant]
     Active Substance: LEVOCARNITINE
  18. L-TYROSINE [Concomitant]
  19. TYLENOL WITH CODEINE [Concomitant]
     Active Substance: ACETAMINOPHEN\CODEINE PHOSPHATE

REACTIONS (6)
  - Confusional state [Not Recovered/Not Resolved]
  - Muscle spasms [Recovering/Resolving]
  - Migraine [Not Recovered/Not Resolved]
  - Thinking abnormal [Unknown]
  - Dysuria [Unknown]
  - Neck pain [Not Recovered/Not Resolved]
